FAERS Safety Report 7015311-3 (Version None)
Quarter: 2010Q3

REPORT INFORMATION
  Report Type: 
  Country: None (occurrence: None)
  Receive Date: 20100927
  Receipt Date: 20100920
  Transmission Date: 20110219
  Serious: Yes (Death)
  Sender: FDA-Public Use
  Company Number: ES-ELI_LILLY_AND_COMPANY-ES201009005627

PATIENT

DRUGS (2)
  1. GEMZAR [Suspect]
     Indication: BLADDER CANCER
     Dosage: 2500 MG/M2, ON DAY 1 EVERY 14 DAYS
     Route: 065
  2. CISPLATIN [Concomitant]
     Indication: BLADDER CANCER
     Dosage: 35 MG/M2, ON DAY 1 EVERY 14 DAYS
     Route: 065

REACTIONS (1)
  - METABOLIC ACIDOSIS [None]
